FAERS Safety Report 4947897-4 (Version None)
Quarter: 2006Q1

REPORT INFORMATION
  Report Type: 
  Country: None (occurrence: None)
  Receive Date: 20060320
  Receipt Date: 20060314
  Transmission Date: 20060701
  Serious: Yes (Hospitalization)
  Sender: FDA-Public Use
  Company Number: 2006AP01220

PATIENT
  Age: 57 Year
  Sex: Male

DRUGS (5)
  1. PLENDIL [Suspect]
     Route: 048
  2. ALCOHOL [Suspect]
     Dosage: 8 STANDARD DRINKS
     Route: 048
     Dates: start: 20051008, end: 20051008
  3. IRBESARTAN AND HYDROCHLOROTHIAZIDE [Concomitant]
  4. PLAVIX [Concomitant]
  5. LIPITOR [Concomitant]

REACTIONS (4)
  - BLOOD PRESSURE INCREASED [None]
  - CARDIAC FLUTTER [None]
  - MALAISE [None]
  - PALPITATIONS [None]
